FAERS Safety Report 12742881 (Version 6)
Quarter: 2017Q2

REPORT INFORMATION
  Report Type: Spontaneous
  Country: US (occurrence: US)
  Receive Date: 20160914
  Receipt Date: 20170616
  Transmission Date: 20170830
  Serious: Yes (Death, Hospitalization, Other)
  Sender: FDA-Public Use
  Company Number: US-SAOL THERAPEUTICS-2016SAO00638

PATIENT
  Age: 71 Year
  Sex: Female
  Weight: 74.83 kg

DRUGS (21)
  1. AMBIEN [Concomitant]
     Active Substance: ZOLPIDEM TARTRATE
  2. POTASSIUM CHLORIDE. [Concomitant]
     Active Substance: POTASSIUM CHLORIDE
  3. LIORESAL [Suspect]
     Active Substance: BACLOFEN
     Indication: MULTIPLE SCLEROSIS
     Dosage: 150 ?G, \DAY
     Route: 037
     Dates: start: 20160830
  4. LASIX [Concomitant]
     Active Substance: FUROSEMIDE
  5. PROVIGIL [Concomitant]
     Active Substance: MODAFINIL
  6. SINGULAIR [Concomitant]
     Active Substance: MONTELUKAST SODIUM
  7. LACTULOSE. [Concomitant]
     Active Substance: LACTULOSE
     Route: 048
  8. ADVAIR HFA [Concomitant]
     Active Substance: FLUTICASONE PROPIONATE\SALMETEROL XINAFOATE
  9. SYNTHROID [Concomitant]
     Active Substance: LEVOTHYROXINE SODIUM
     Route: 062
  10. COZAAR [Concomitant]
     Active Substance: LOSARTAN POTASSIUM
  11. COPAXONE [Concomitant]
     Active Substance: GLATIRAMER ACETATE
     Route: 058
  12. COLACE [Concomitant]
     Active Substance: DOCUSATE SODIUM
  13. FENTANYL TRANSDERMAL SYSTEM [Concomitant]
     Active Substance: FENTANYL
     Route: 062
  14. LIORESAL [Suspect]
     Active Substance: BACLOFEN
     Indication: MUSCLE SPASTICITY
     Dosage: 170 ?G, \DAY
     Route: 037
     Dates: start: 20010330, end: 20160830
  15. COREG [Concomitant]
     Active Substance: CARVEDILOL
  16. ZOLOFT [Concomitant]
     Active Substance: SERTRALINE HYDROCHLORIDE
  17. PERCOCET [Concomitant]
     Active Substance: ACETAMINOPHEN\OXYCODONE HYDROCHLORIDE
     Dosage: FOR BREAKTHROUGH PAIN
  18. CYMBALTA [Concomitant]
     Active Substance: DULOXETINE HYDROCHLORIDE
  19. PRILOSEC [Concomitant]
     Active Substance: OMEPRAZOLE MAGNESIUM
  20. ASPIRIN EC [Concomitant]
     Active Substance: ASPIRIN
     Dosage: 1 TAB, /DAY
  21. MYLANTA [Concomitant]
     Active Substance: ALUMINUM HYDROXIDE\DIMETHICONE\MAGNESIUM HYDROXIDE
     Route: 048

REACTIONS (9)
  - Abdominal distension [Not Recovered/Not Resolved]
  - Vomiting [Not Recovered/Not Resolved]
  - Unevaluable event [Not Recovered/Not Resolved]
  - Aspiration [Not Recovered/Not Resolved]
  - Hyporesponsive to stimuli [Not Recovered/Not Resolved]
  - Peripheral swelling [Not Recovered/Not Resolved]
  - Death [Fatal]
  - Gastrointestinal disorder [Not Recovered/Not Resolved]
  - Implant site haematoma [Not Recovered/Not Resolved]

NARRATIVE: CASE EVENT DATE: 201608
